FAERS Safety Report 11267627 (Version 2)
Quarter: 2016Q3

REPORT INFORMATION
  Report Type: Spontaneous
  Country: US (occurrence: US)
  Receive Date: 20150713
  Receipt Date: 20160801
  Transmission Date: 20161109
  Serious: No
  Sender: FDA-Public Use
  Company Number: US-GLAXOSMITHKLINE-US2015GSK100356

PATIENT
  Sex: Male

DRUGS (2)
  1. COREG CR [Suspect]
     Active Substance: CARVEDILOL PHOSPHATE
     Indication: BLOOD PRESSURE ABNORMAL
     Dosage: 20 MG, UNK
  2. COREG CR [Suspect]
     Active Substance: CARVEDILOL PHOSPHATE
     Dosage: 10 MG, UNK

REACTIONS (3)
  - Dizziness [Not Recovered/Not Resolved]
  - Drug effect increased [Unknown]
  - Dizziness postural [Not Recovered/Not Resolved]
